FAERS Safety Report 6440321-4 (Version None)
Quarter: 2009Q4

REPORT INFORMATION
  Report Type: 
  Country: None (occurrence: None)
  Receive Date: 20091113
  Receipt Date: 20091110
  Transmission Date: 20100525
  Serious: Yes (Other)
  Sender: FDA-Public Use
  Company Number: IN-ROXANE LABORATORIES, INC.-2009-RO-01151RO

PATIENT
  Age: 8 Year
  Weight: 15 kg

DRUGS (7)
  1. ONDANSETRON [Suspect]
     Dosage: 2 MG
     Route: 042
  2. ATROPINE [Concomitant]
     Indication: BRADYCARDIA
     Dosage: 0.2 MG
     Route: 042
  3. ATROPINE [Concomitant]
     Indication: LOSS OF CONSCIOUSNESS
  4. ATROPINE [Concomitant]
     Indication: APNOEA
  5. OXYGEN [Concomitant]
     Indication: BRADYCARDIA
  6. OXYGEN [Concomitant]
     Indication: LOSS OF CONSCIOUSNESS
  7. OXYGEN [Concomitant]
     Indication: APNOEA

REACTIONS (3)
  - APNOEA [None]
  - BRADYCARDIA [None]
  - LOSS OF CONSCIOUSNESS [None]
